FAERS Safety Report 6055754-8 (Version None)
Quarter: 2009Q1

REPORT INFORMATION
  Report Type: 
  Country: None (occurrence: None)
  Receive Date: 20090126
  Receipt Date: 20090115
  Transmission Date: 20090719
  Serious: Yes (Other)
  Sender: FDA-Public Use
  Company Number: FRP09000013

PATIENT
  Age: 68 Year
  Sex: Female

DRUGS (3)
  1. DIDRONEL [Suspect]
     Indication: OSTEOPENIA
     Dosage: 400 MG, CYCLIC 1/D, ORAL
     Route: 048
     Dates: start: 19960101, end: 20050101
  2. DIDRONEL [Suspect]
     Indication: OSTEOPENIA
     Dosage: 400 MG, CYCLIC 1/D, ORAL
     Route: 048
     Dates: start: 19960101, end: 20050101
  3. ARSENIC (ARSENIC) [Suspect]
     Dosage: DENTAL
     Route: 004
     Dates: start: 20080101

REACTIONS (4)
  - DENTAL PULP DISORDER [None]
  - GINGIVITIS ULCERATIVE [None]
  - TOOTHACHE [None]
  - VASOCONSTRICTION [None]
